FAERS Safety Report 10063268 (Version 2)
Quarter: 2014Q2

REPORT INFORMATION
  Report Type: Spontaneous
  Country: US (occurrence: US)
  Receive Date: 20140407
  Receipt Date: 20140414
  Transmission Date: 20141212
  Serious: Yes (Hospitalization)
  Sender: FDA-Public Use
  Company Number: US-ELI_LILLY_AND_COMPANY-US201403008994

PATIENT
  Age: 82 Year
  Sex: Male

DRUGS (6)
  1. ALIMTA [Suspect]
     Indication: SMALL CELL LUNG CANCER METASTATIC
     Dosage: UNK
     Dates: start: 20131223, end: 20131223
  2. METFORMIN [Concomitant]
  3. LISINOPRIL [Concomitant]
  4. METOPROLOL [Concomitant]
  5. JANUVIA [Concomitant]
  6. LOVASTATIN [Concomitant]

REACTIONS (7)
  - Nonspecific reaction [Unknown]
  - Weight decreased [Unknown]
  - Abasia [Unknown]
  - Speech disorder [Unknown]
  - Thinking abnormal [Recovering/Resolving]
  - Off label use [Unknown]
  - Asthenia [Unknown]
